FAERS Safety Report 5507935-7 (Version None)
Quarter: 2007Q4

REPORT INFORMATION
  Report Type: 
  Country: None (occurrence: None)
  Receive Date: 20071031
  Receipt Date: 20070717
  Transmission Date: 20080405
  Serious: No
  Sender: FDA-Public Use
  Company Number: 200712350BWH

PATIENT
  Age: 63 Year
  Sex: Male

DRUGS (1)
  1. NEXAVAR [Suspect]
     Indication: RENAL CELL CARCINOMA STAGE UNSPECIFIED
     Dosage: 400 MG, BID, ORAL
     Route: 048
     Dates: start: 20070712

REACTIONS (3)
  - ORAL PAIN [None]
  - STOMATITIS [None]
  - WEIGHT DECREASED [None]
